FAERS Safety Report 8961338 (Version 5)
Quarter: 2013Q1

REPORT INFORMATION
  Report Type: Report from Study
  Country: FR (occurrence: FR)
  Receive Date: 20121212
  Receipt Date: 20130104
  Transmission Date: 20140127
  Serious: Yes (Hospitalization)
  Sender: FDA-Public Use
  Company Number: FR-EISAI INC-E7389-02550-CLI-FR

PATIENT
  Age: 57 Year
  Sex: Female
  Weight: 128 kg

DRUGS (6)
  1. LYSANXIA [Concomitant]
  2. SKENAN [Concomitant]
  3. INEXIUM [Concomitant]
  4. SECTRAL [Concomitant]
     Dosage: 400
  5. FORLAX [Concomitant]
  6. E7389 (BOLD) [Suspect]
     Indication: BREAST CANCER
     Route: 041
     Dates: start: 20120524, end: 20120524

REACTIONS (4)
  - Hip fracture [Recovered/Resolved]
  - Blood creatinine increased [Not Recovered/Not Resolved]
  - Somnolence [Recovered/Resolved]
  - Vertigo [Recovered/Resolved]
